FAERS Safety Report 16288313 (Version 1)
Quarter: 2019Q2

REPORT INFORMATION
  Report Type: Spontaneous
  Country: US (occurrence: US)
  Receive Date: 20190508
  Receipt Date: 20190508
  Transmission Date: 20190711
  Serious: No
  Sender: FDA-Public Use
  Company Number: US-ASTRAZENECA-2019SE55256

PATIENT
  Age: 24477 Day
  Sex: Female

DRUGS (1)
  1. BYDUREON BCISE [Suspect]
     Active Substance: EXENATIDE
     Indication: TYPE 2 DIABETES MELLITUS
     Route: 058
     Dates: start: 20190128, end: 20190204

REACTIONS (8)
  - Swelling [Unknown]
  - Blood glucose increased [Unknown]
  - Erythema [Not Recovered/Not Resolved]
  - Nodule [Recovered/Resolved]
  - Pruritus [Not Recovered/Not Resolved]
  - Eye abscess [Unknown]
  - Dyspnoea [Recovered/Resolved]
  - Urticaria [Recovered/Resolved]

NARRATIVE: CASE EVENT DATE: 20190128
